FAERS Safety Report 24375611 (Version 2)
Quarter: 2025Q2

REPORT INFORMATION
  Report Type: Spontaneous
  Country: FR (occurrence: FR)
  Receive Date: 20240928
  Receipt Date: 20250428
  Transmission Date: 20250717
  Serious: Yes (Disabling)
  Sender: AUROBINDO
  Company Number: FR-AFSSAPS-SE2024000731

PATIENT
  Age: 84 Year
  Sex: Male
  Weight: 97 kg

DRUGS (1)
  1. AMIODARONE [Suspect]
     Active Substance: AMIODARONE
     Indication: Atrial fibrillation
     Dosage: 100 MILLIGRAM, ONCE A DAY
     Route: 048
     Dates: start: 200710, end: 202210

REACTIONS (1)
  - Peripheral sensory neuropathy [Recovered/Resolved with Sequelae]

NARRATIVE: CASE EVENT DATE: 20220501
